FAERS Safety Report 7766738-3 (Version None)
Quarter: 2011Q3

REPORT INFORMATION
  Report Type: 
  Country: None (occurrence: None)
  Receive Date: 20110919
  Receipt Date: 20110908
  Transmission Date: 20111222
  Serious: Yes (Other)
  Sender: FDA-Public Use
  Company Number: 2011SP002994

PATIENT
  Sex: Female

DRUGS (2)
  1. LATUDA [Suspect]
     Dosage: 40 MG; ORAL
     Route: 048
     Dates: start: 20110101, end: 20110101
  2. ALL OTHER THERAPEUTIC PRODUCTS [Concomitant]

REACTIONS (1)
  - PLATELET COUNT DECREASED [None]
